FAERS Safety Report 20365118 (Version 2)
Quarter: 2022Q1

REPORT INFORMATION
  Report Type: Spontaneous
  Country: OM (occurrence: OM)
  Receive Date: 20220122
  Receipt Date: 20220226
  Transmission Date: 20220424
  Serious: Yes (Life-Threatening, Hospitalization, Other)
  Sender: FDA-Public Use
  Company Number: OM-Accord-251223

PATIENT
  Age: 38 Year
  Sex: Male

DRUGS (5)
  1. MYCOPHENOLATE MOFETIL [Suspect]
     Active Substance: MYCOPHENOLATE MOFETIL
     Indication: Immunosuppressant drug therapy
     Dates: start: 2017
  2. PREDNISOLONE [Suspect]
     Active Substance: PREDNISOLONE
     Indication: Immunosuppressant drug therapy
     Dates: start: 2017
  3. CYCLOSPORINE [Suspect]
     Active Substance: CYCLOSPORINE
     Indication: Immunosuppressant drug therapy
     Dates: start: 2017
  4. LANTUS [Concomitant]
     Active Substance: INSULIN GLARGINE
     Indication: Type 2 diabetes mellitus
  5. INSULIN NOS [Concomitant]
     Active Substance: INSULIN NOS
     Indication: Type 2 diabetes mellitus

REACTIONS (7)
  - Encephalopathy [Recovering/Resolving]
  - Status epilepticus [Recovering/Resolving]
  - Neuropathy peripheral [Recovered/Resolved]
  - West Nile viral infection [Recovering/Resolving]
  - Upper respiratory tract infection [Recovering/Resolving]
  - Renal impairment [Recovering/Resolving]
  - Microangiopathy [Recovering/Resolving]

NARRATIVE: CASE EVENT DATE: 20180101
